FAERS Safety Report 9851303 (Version 2)
Quarter: 2016Q4

REPORT INFORMATION
  Report Type: Spontaneous
  Country: SK (occurrence: SK)
  Receive Date: 20140129
  Receipt Date: 20161214
  Transmission Date: 20170207
  Serious: Yes (Death, Other)
  Sender: FDA-Public Use
  Company Number: SK-PFIZER INC-2014023791

PATIENT
  Sex: Female

DRUGS (5)
  1. EUTHYROX [Concomitant]
     Active Substance: LEVOTHYROXINE SODIUM
     Dosage: UNK
     Dates: start: 2001
  2. SUNITINIB MALATE. [Suspect]
     Active Substance: SUNITINIB MALATE
     Dosage: 37.5 MG CYCLIC, 4 WEEKS/ 2 WEEKS
     Dates: start: 200608, end: 20100519
  3. SUNITINIB MALATE. [Suspect]
     Active Substance: SUNITINIB MALATE
     Dosage: 37.5 MG, CYCLIC 4 WEEKS/2 WEEKS
     Dates: start: 20110211
  4. SUNITINIB MALATE. [Suspect]
     Active Substance: SUNITINIB MALATE
     Indication: RENAL CANCER
     Dosage: 50 MG CYCLIC, 4 WEEKS/ 2 WEEKS
     Dates: start: 200511, end: 200608
  5. SUNITINIB MALATE. [Suspect]
     Active Substance: SUNITINIB MALATE
     Dosage: 37.5 MG, CYCLIC, 2 WEEKS/1 WEEK
     Dates: start: 201105

REACTIONS (7)
  - Hepatorenal failure [Fatal]
  - Stomatitis [Unknown]
  - Liver function test increased [Unknown]
  - Palmar-plantar erythrodysaesthesia syndrome [Unknown]
  - Disease progression [Unknown]
  - Gallbladder disorder [Unknown]
  - Renal cancer [Unknown]

NARRATIVE: CASE EVENT DATE: 201009
